FAERS Safety Report 16630195 (Version 1)
Quarter: 2019Q3

REPORT INFORMATION
  Report Type: Spontaneous
  Country: US (occurrence: US)
  Receive Date: 20190613
  Receipt Date: 20190613
  Transmission Date: 20191004
  Serious: Yes (Hospitalization)
  Sender: FDA-Public Use
  Company Number: None

PATIENT
  Age: 37 Year
  Sex: Female

DRUGS (6)
  1. FISH OIL CAP [Concomitant]
  2. TACROLIMUS 0.5MG CAP [Suspect]
     Active Substance: TACROLIMUS
     Dosage: 1 C QAM PO?1 C TID PO
     Route: 048
     Dates: start: 20171121
  3. MYCOPHENOLIC 180MG DR TABLET [Suspect]
     Active Substance: MYCOPHENOLIC ACID
     Indication: PRODUCT USED FOR UNKNOWN INDICATION
     Dosage: 4 T TID PO
     Route: 048
     Dates: start: 20170816
  4. ATORVASTATIN TAB [Concomitant]
     Active Substance: ATORVASTATIN
  5. GARLIC CAP [Concomitant]
  6. CARVEDILOL TAB [Concomitant]
     Active Substance: CARVEDILOL

REACTIONS (1)
  - Urinary tract infection [None]

NARRATIVE: CASE EVENT DATE: 201906
